FAERS Safety Report 8676169 (Version 12)
Quarter: 2014Q1

REPORT INFORMATION
  Report Type: Report from Study
  Country: DE (occurrence: DE)
  Receive Date: 20120720
  Receipt Date: 20140327
  Transmission Date: 20141002
  Serious: Yes (Hospitalization, Other)
  Sender: FDA-Public Use
  Company Number: DE-JNJFOC-20120707670

PATIENT
  Age: 49 Year
  Sex: Male
  Weight: 80 kg

DRUGS (6)
  1. REMICADE [Suspect]
     Indication: COLITIS ULCERATIVE
     Route: 042
  2. REMICADE [Suspect]
     Indication: COLITIS ULCERATIVE
     Route: 042
     Dates: start: 20110527, end: 20120529
  3. SALOFALK [Concomitant]
     Indication: COLITIS ULCERATIVE
     Route: 048
  4. SALOFALK [Concomitant]
     Indication: COLITIS ULCERATIVE
     Route: 048
  5. PREDNISOLONE [Concomitant]
     Indication: COLITIS ULCERATIVE
     Route: 065
     Dates: start: 20120602
  6. CIPROBAY [Concomitant]
     Indication: PROPHYLAXIS
     Route: 048
     Dates: start: 20120601, end: 20120605

REACTIONS (2)
  - Bladder cancer [Recovered/Resolved]
  - Urinary tract infection [Unknown]
